FAERS Safety Report 14204627 (Version 1)
Quarter: 2017Q4

REPORT INFORMATION
  Report Type: Spontaneous
  Country: US (occurrence: None)
  Receive Date: 20171118
  Receipt Date: 20171118
  Transmission Date: 20180321
  Serious: Yes (Hospitalization)
  Sender: FDA-Public Use
  Company Number: None

PATIENT
  Age: 36 Year
  Sex: Male

DRUGS (4)
  1. METHIMAZOLE. [Concomitant]
     Active Substance: METHIMAZOLE
  2. AUGMENTIN [Suspect]
     Active Substance: AMOXICILLIN\CLAVULANATE POTASSIUM
     Dates: start: 201502, end: 20150302
  3. PREVACID [Concomitant]
     Active Substance: LANSOPRAZOLE
  4. ZANTAC [Concomitant]
     Active Substance: RANITIDINE HYDROCHLORIDE

REACTIONS (5)
  - Drug-induced liver injury [None]
  - Pruritus [None]
  - Fatigue [None]
  - Ocular icterus [None]
  - Hepatitis acute [None]

NARRATIVE: CASE EVENT DATE: 20150307
